FAERS Safety Report 24846122 (Version 1)
Quarter: 2025Q1

REPORT INFORMATION
  Report Type: Spontaneous
  Country: FR (occurrence: FR)
  Receive Date: 20250115
  Receipt Date: 20250115
  Transmission Date: 20250409
  Serious: Yes (Life-Threatening, Hospitalization)
  Sender: MYLAN
  Company Number: None

PATIENT
  Age: 21 Year
  Sex: Male

DRUGS (1)
  1. VANCOMYCIN [Suspect]
     Active Substance: VANCOMYCIN
     Indication: Antibiotic prophylaxis
     Dosage: 2 GRAM, QH (PSE 2G/H)
     Route: 042
     Dates: start: 20180523, end: 20180523

REACTIONS (2)
  - Anaphylactic shock [Recovered/Resolved]
  - Skin test negative [Recovered/Resolved]

NARRATIVE: CASE EVENT DATE: 20180523
